FAERS Safety Report 7214695-0 (Version None)
Quarter: 2011Q1

REPORT INFORMATION
  Report Type: 
  Country: None (occurrence: None)
  Receive Date: 20110107
  Receipt Date: 20100203
  Transmission Date: 20110831
  Serious: No
  Sender: FDA-Public Use
  Company Number: A0817761A

PATIENT
  Age: 82 Year
  Sex: Female

DRUGS (10)
  1. PLAVIX [Concomitant]
  2. LYRICA [Concomitant]
  3. THYROID MEDICATION [Concomitant]
  4. LUNESTA [Concomitant]
  5. CYMBALTA [Concomitant]
  6. CELEBREX [Concomitant]
  7. LOVAZA [Suspect]
     Dosage: 2CAP TWICE PER DAY
     Route: 048
     Dates: start: 20080101
  8. ZETIA [Concomitant]
  9. NEXIUM [Concomitant]
  10. EYE DROPS [Concomitant]

REACTIONS (3)
  - PRODUCT QUALITY ISSUE [None]
  - PAIN OF SKIN [None]
  - NAUSEA [None]
